FAERS Safety Report 6456462-1 (Version None)
Quarter: 2009Q4

REPORT INFORMATION
  Report Type: 
  Country: None (occurrence: None)
  Receive Date: 20091125
  Receipt Date: 20091117
  Transmission Date: 20100525
  Serious: Yes (Hospitalization)
  Sender: FDA-Public Use
  Company Number: IT-AMGEN-US375925

PATIENT
  Sex: Female

DRUGS (10)
  1. ENBREL [Suspect]
     Indication: RHEUMATOID ARTHRITIS
     Dosage: 25 MG
     Route: 058
     Dates: start: 20080101
  2. XANAX [Concomitant]
     Dosage: 0,25 MG
     Route: 048
  3. ESOMEPRAZOLE [Concomitant]
     Dosage: 20MG
     Route: 065
  4. METHOTREXATE [Concomitant]
     Route: 065
  5. PANCREX [Concomitant]
     Route: 065
  6. TACHIPIRINA [Concomitant]
     Route: 065
  7. LEDERFOLIN [Concomitant]
     Route: 048
  8. CALCIUM CARBONATE [Concomitant]
     Route: 065
  9. CYCLOSPORINE [Concomitant]
     Dosage: 50MG
     Route: 065
  10. ACTONEL [Concomitant]
     Dosage: 35MG
     Route: 065

REACTIONS (3)
  - HYPOAESTHESIA [None]
  - PARAESTHESIA [None]
  - TRANSIENT ISCHAEMIC ATTACK [None]
